FAERS Safety Report 7221325-0 (Version None)
Quarter: 2011Q1

REPORT INFORMATION
  Report Type: 
  Country: None (occurrence: None)
  Receive Date: 20110103
  Receipt Date: 20101221
  Transmission Date: 20110831
  Serious: Yes (Life-Threatening)
  Sender: FDA-Public Use
  Company Number: FKO201000599

PATIENT
  Age: 7 Year
  Sex: Female

DRUGS (11)
  1. METHOTREXATE (MANUFACTURER UNKNOWN) (METHOTREXATE) (METHOTREXATE) [Suspect]
     Indication: B PRECURSOR TYPE ACUTE LEUKAEMIA
     Dosage: (12 MG, BOTH INDUCTION PHASES), INTRATHECAL
     Route: 037
  2. ASPARAGINASE (ASPARAGINASE) (ASPARAGINASE) [Concomitant]
  3. TIOGUANINE (TIOGUANINE) (TIOGUANINE) [Concomitant]
  4. MERCAPTOPURINE [Suspect]
     Indication: B PRECURSOR TYPE ACUTE LEUKAEMIA
     Dosage: (60 MG/M2, STANDARD DOSE, PHASE 2 OF INDUCTION)
  5. DAUNORUBICIN HCL [Concomitant]
  6. PREDNISONE (PREDNISONE) (PREDNISONE) [Concomitant]
  7. CYTARABINE [Suspect]
     Indication: B PRECURSOR TYPE ACUTE LEUKAEMIA
     Dosage: (75 MG/M2, STANDARD DOSE, PHASE 2 OF INDUCTION) (75 MG/M2, REINDUCTION CHEMOTHERAPY)
  8. CYCLOPHOSPHAMIDE [Suspect]
     Indication: B PRECURSOR TYPE ACUTE LEUKAEMIA
     Dosage: (1000 MG/M2, STANDARD DOSE, PHASE 2 OF INDUCTION) 9250 MG/M2, REINDUCTION CHEMOTHERAPY)
  9. DOXORUBICIN HCL [Suspect]
     Indication: B PRECURSOR TYPE ACUTE LEUKAEMIA
     Dosage: (20 MG, REINDUCTION CHEMOTHERAPY)
  10. DEXAMETHASONE [Concomitant]
  11. VINCRISTINE [Concomitant]

REACTIONS (10)
  - MUTISM [None]
  - GASTROENTERITIS [None]
  - BRONCHITIS [None]
  - CANDIDA SEPSIS [None]
  - FUNGAL SEPSIS [None]
  - SUBCLAVIAN VEIN THROMBOSIS [None]
  - RESPIRATORY TRACT INFECTION [None]
  - CANDIDA PNEUMONIA [None]
  - NEUTROPENIA [None]
  - ENCEPHALITIS [None]
